FAERS Safety Report 14949447 (Version 1)
Quarter: 2018Q2

REPORT INFORMATION
  Report Type: Spontaneous
  Country: US (occurrence: US)
  Receive Date: 20180529
  Receipt Date: 20180529
  Transmission Date: 20180711
  Serious: No
  Sender: FDA-Public Use
  Company Number: US-BIODELIVERY SCIENCES INTERNATIONAL-2016BDSI0045

PATIENT
  Age: 20 Year
  Sex: Male
  Weight: 71.28 kg

DRUGS (2)
  1. LACTULOSE. [Concomitant]
     Active Substance: LACTULOSE
     Indication: CONSTIPATION
     Route: 048
     Dates: start: 20160204
  2. BUPRENORPHINE/NALOXONE [Suspect]
     Active Substance: BUPRENORPHINE\NALOXONE
     Indication: DRUG DEPENDENCE
     Dosage: 2.1/0.3 MG 1.5 FILMS
     Route: 002
     Dates: start: 20160425, end: 20160527

REACTIONS (2)
  - Drug ineffective [Unknown]
  - Product identification number issue [Unknown]

NARRATIVE: CASE EVENT DATE: 20160520
